FAERS Safety Report 14167708 (Version 2)
Quarter: 2018Q3

REPORT INFORMATION
  Report Type: Report from Study
  Country: CA (occurrence: CA)
  Receive Date: 20171108
  Receipt Date: 20180831
  Transmission Date: 20181010
  Serious: Yes (Hospitalization, Other)
  Sender: FDA-Public Use
  Company Number: CA-CONCORDIA PHARMACEUTICALS INC.-GSH201711-006316

PATIENT
  Age: 52 Year
  Sex: Female

DRUGS (6)
  1. LEFLUNOMIDE. [Suspect]
     Active Substance: LEFLUNOMIDE
     Route: 048
  2. IBUPROFEN. [Concomitant]
     Active Substance: IBUPROFEN
  3. METOPROLOL TARTRATE. [Concomitant]
     Active Substance: METOPROLOL TARTRATE
  4. PLAQUENIL [Suspect]
     Active Substance: HYDROXYCHLOROQUINE SULFATE
     Route: 048
  5. ENBREL [Suspect]
     Active Substance: ETANERCEPT
     Indication: RHEUMATOID ARTHRITIS
     Route: 065
     Dates: start: 201610
  6. METHOTREXATE. [Suspect]
     Active Substance: METHOTREXATE
     Route: 065

REACTIONS (10)
  - Back pain [Not Recovered/Not Resolved]
  - Cystitis [Unknown]
  - Genital pain [Not Recovered/Not Resolved]
  - Drug ineffective [Unknown]
  - Unevaluable event [Unknown]
  - Uterine disorder [Unknown]
  - Blood urine present [Unknown]
  - Nephrolithiasis [Unknown]
  - Drug intolerance [Unknown]
  - Uterine leiomyoma [Unknown]
